FAERS Safety Report 6370797-2 (Version None)
Quarter: 2009Q3

REPORT INFORMATION
  Report Type: 
  Country: None (occurrence: None)
  Receive Date: 20090923
  Receipt Date: 20070510
  Transmission Date: 20100115
  Serious: Yes (Other)
  Sender: FDA-Public Use
  Company Number: US-ASTRAZENECA-2006UW24635

PATIENT
  Sex: Male
  Weight: 77.1 kg

DRUGS (31)
  1. SEROQUEL [Suspect]
     Indication: BIPOLAR DISORDER
     Route: 048
     Dates: start: 20020101
  2. SEROQUEL [Suspect]
     Indication: DEPRESSION
     Route: 048
     Dates: start: 20020101
  3. SEROQUEL [Suspect]
     Route: 048
     Dates: end: 20040101
  4. SEROQUEL [Suspect]
     Route: 048
     Dates: end: 20040101
  5. SEROQUEL [Suspect]
     Dosage: 25 MG-200 MG
     Route: 048
     Dates: start: 20021031, end: 20050930
  6. SEROQUEL [Suspect]
     Dosage: 25 MG-200 MG
     Route: 048
     Dates: start: 20021031, end: 20050930
  7. SEROQUEL [Suspect]
     Route: 048
     Dates: start: 20051227, end: 20060127
  8. SEROQUEL [Suspect]
     Route: 048
     Dates: start: 20051227, end: 20060127
  9. ABILIFY [Concomitant]
     Dosage: STRENGTH - 10 MG, 15 MG
     Dates: start: 20040724
  10. HALDOL [Concomitant]
  11. RISPERDAL [Concomitant]
     Dosage: 1 MG, 0.5 MG EVERY MORNING
     Dates: start: 20000710
  12. ZYPREXA [Concomitant]
     Dosage: STRENGTH-25 MG, 10 MG, 15 MG, 20 MG, 2.5 MG
     Dates: start: 19990719
  13. TRAZODONE HCL [Concomitant]
  14. BUSPAR [Concomitant]
  15. DEPAKOTE [Concomitant]
     Dosage: STRENGTH-250 MG, 500 MG
     Dates: start: 19991021
  16. PRILOSEC [Concomitant]
     Indication: ULCER
     Dosage: STRENGTH-20 MG, 40 MG
     Route: 065
     Dates: start: 19990704
  17. PAXIL [Concomitant]
     Dosage: STRENGTH-40 MG, 20 MG, 10 MG, 30 MG
     Dates: start: 19990719
  18. HUMULIN R [Concomitant]
     Dosage: STRENGTH-70/30, 100 U/ML
     Dates: start: 19990704
  19. NEXIUM [Concomitant]
     Dosage: STRENGTH-20 MG, 40 MG
     Route: 065
     Dates: start: 20011016
  20. LIPITOR [Concomitant]
     Dosage: STRENGTH-20 MG, 10 MG
     Dates: start: 20000719
  21. ZESTRIL [Concomitant]
     Dosage: STRENGTH-20 MG, 5 MG, 40 MG
     Route: 065
     Dates: start: 20000222
  22. DIAZEPAM [Concomitant]
     Dosage: STRENGTH-10 MG, 5 MG
     Dates: start: 20000420
  23. TRAMADOL HCL [Concomitant]
     Dates: start: 20020727
  24. NORVASC [Concomitant]
     Dates: start: 20051227
  25. DITROPAN XL [Concomitant]
     Dates: start: 20040115
  26. ASPIRIN [Concomitant]
     Dates: start: 20031118
  27. HYDROCHLOROTHIAZIDE [Concomitant]
     Dates: start: 20011128
  28. NOVOLIN R [Concomitant]
     Dosage: STRENGTH-70/30, 100 U/ML
     Dates: start: 20011129
  29. HYDROCORTISONE [Concomitant]
     Dates: start: 20040322
  30. NICOTINE [Concomitant]
     Dosage: 14 MG DAILY, 7 MG DAILY
     Dates: start: 20021203
  31. VERAPAMIL [Concomitant]
     Dates: start: 20001024

REACTIONS (2)
  - DIABETES MELLITUS [None]
  - PANCREATITIS [None]
